FAERS Safety Report 4822212-5 (Version None)
Quarter: 2005Q4

REPORT INFORMATION
  Report Type: 
  Country: None (occurrence: None)
  Receive Date: 20051103
  Receipt Date: 20051024
  Transmission Date: 20060501
  Serious: Yes (Hospitalization)
  Sender: FDA-Public Use
  Company Number: COV2-2005-00306

PATIENT
  Age: 89 Year
  Sex: Female
  Weight: 63.5 kg

DRUGS (8)
  1. FOSRENOL [Suspect]
     Indication: HYPERPHOSPHATAEMIA
     Dosage: 750 MG, 3X/DAY; TID, ORAL
     Route: 048
     Dates: start: 20050627
  2. NORVASC /DEN/ (AMLODIPINE BESILATE) [Concomitant]
  3. SENSIPAR [Concomitant]
  4. TIMOPTIC [Concomitant]
  5. PILOCAR (PILOCARPINE HYDROCHLORIDE) [Concomitant]
  6. ECOTRIN (ACETYLSALICYLIC ACID) [Concomitant]
  7. NEPHROCAPS (VITAMINS NOS, FOLIC ACID) [Concomitant]
  8. NU-IRON (POLYSACCHARIDE-IRON COMPLEX) [Concomitant]

REACTIONS (16)
  - ANAEMIA [None]
  - ARRHYTHMIA [None]
  - ATRIOVENTRICULAR BLOCK COMPLETE [None]
  - CEREBRAL ATROPHY [None]
  - CEREBRAL INFARCTION [None]
  - CEREBROVASCULAR ACCIDENT [None]
  - DIVERTICULUM [None]
  - DIVERTICULUM INTESTINAL [None]
  - ENCEPHALOPATHY [None]
  - GASTRIC DYSPLASIA [None]
  - GASTRITIS [None]
  - GASTROINTESTINAL HAEMORRHAGE [None]
  - HAEMATOCHEZIA [None]
  - IRRITABLE BOWEL SYNDROME [None]
  - NODAL RHYTHM [None]
  - PERIPHERAL ISCHAEMIA [None]
